FAERS Safety Report 12998029 (Version 1)
Quarter: 2016Q4

REPORT INFORMATION
  Report Type: Spontaneous
  Country: SE (occurrence: SE)
  Receive Date: 20161205
  Receipt Date: 20161205
  Transmission Date: 20170207
  Serious: Yes (Death)
  Sender: FDA-Public Use
  Company Number: SE-NAPPMUNDI-GBR-2016-0042017

PATIENT
  Age: 79 Year
  Sex: Female

DRUGS (1)
  1. OXYCONTIN [Suspect]
     Active Substance: OXYCODONE HYDROCHLORIDE
     Indication: BACK PAIN
     Dosage: UNK
     Route: 048
     Dates: start: 2006, end: 2016

REACTIONS (2)
  - Death [Fatal]
  - Dependence [Fatal]

NARRATIVE: CASE EVENT DATE: 2016
